FAERS Safety Report 7803065-X (Version None)
Quarter: 2011Q4

REPORT INFORMATION
  Report Type: 
  Country: None (occurrence: None)
  Receive Date: 20111007
  Receipt Date: 20111004
  Transmission Date: 20120403
  Serious: Yes (Other)
  Sender: FDA-Public Use
  Company Number: JP-B.I. PHARMACEUTICALS,INC./RIDGEFIELD-2011-BP-20965NB

PATIENT
  Sex: Male
  Weight: 57 kg

DRUGS (7)
  1. ALDACTONE [Concomitant]
     Indication: CARDIAC FAILURE CHRONIC
     Dosage: 25 MG
     Route: 048
  2. DILTIAZEM HCL [Concomitant]
     Indication: HYPERTENSION
     Dosage: 100 MG
     Route: 048
  3. PRADAXA [Suspect]
     Dosage: 110 MG
     Route: 048
     Dates: start: 20110809
  4. PRADAXA [Suspect]
     Indication: ATRIAL FIBRILLATION
     Dosage: 300 MG
     Route: 048
     Dates: start: 20110702
  5. DIART [Concomitant]
     Indication: CARDIAC FAILURE CHRONIC
     Dosage: 60 MG
     Route: 048
  6. PRADAXA [Suspect]
     Dosage: 150 MG
     Route: 048
     Dates: start: 20110713, end: 20110808
  7. PERINDOPRIL ERBUMINE [Concomitant]
     Indication: HYPERTENSION
     Dosage: 2 MG
     Route: 048

REACTIONS (5)
  - HAEMORRHAGE [None]
  - HAEMORRHAGE SUBCUTANEOUS [None]
  - INTERNATIONAL NORMALISED RATIO INCREASED [None]
  - LACERATION [None]
  - FALL [None]
